FAERS Safety Report 13738629 (Version 1)
Quarter: 2017Q3

REPORT INFORMATION
  Report Type: Spontaneous
  Country: US (occurrence: US)
  Receive Date: 20170710
  Receipt Date: 20170710
  Transmission Date: 20171127
  Serious: Yes (Other)
  Sender: FDA-Public Use
  Company Number: US-SAOL THERAPEUTICS-2017SAO00216

PATIENT
  Sex: Female

DRUGS (3)
  1. BACLOFEN. [Suspect]
     Active Substance: BACLOFEN
     Indication: PAIN
     Dosage: UNK
     Route: 037
  2. BACLOFEN. [Suspect]
     Active Substance: BACLOFEN
     Indication: SPINAL CORD INJURY
  3. MORPHINE [Suspect]
     Active Substance: MORPHINE
     Route: 037

REACTIONS (3)
  - Pain [Recovered/Resolved]
  - Complication associated with device [Recovered/Resolved]
  - Therapeutic response decreased [Recovered/Resolved]
